FAERS Safety Report 20546283 (Version 1)
Quarter: 2022Q1

REPORT INFORMATION
  Report Type: Spontaneous
  Country: US (occurrence: US)
  Receive Date: 20220303
  Receipt Date: 20220303
  Transmission Date: 20220423
  Serious: Yes (Other)
  Sender: FDA-Public Use
  Company Number: US-AMRYT PHARMACEUTICALS DAC-AEGR005530

PATIENT
  Age: 10 Year
  Sex: Female
  Weight: 53.968 kg

DRUGS (6)
  1. MYALEPT [Suspect]
     Active Substance: METRELEPTIN
     Indication: Lipodystrophy acquired
     Dosage: 1 MILLILITER (5MG OR 100UNITS), QD
     Route: 058
  2. NOVOLOG [Concomitant]
     Active Substance: INSULIN ASPART
     Indication: Product used for unknown indication
     Dosage: UNK
  3. LEVEMIR [Concomitant]
     Active Substance: INSULIN DETEMIR
     Indication: Product used for unknown indication
     Dosage: UNK
  4. ATORVASTATIN CALCIUM [Concomitant]
     Active Substance: ATORVASTATIN CALCIUM
     Indication: Product used for unknown indication
  5. METFORMIN HYDROCHLORIDE [Concomitant]
     Active Substance: METFORMIN HYDROCHLORIDE
     Indication: Product used for unknown indication
     Dosage: UNK
  6. BACTERIOSTATIC WATER [Concomitant]
     Active Substance: WATER
     Indication: Product used for unknown indication
     Dosage: UNK

REACTIONS (1)
  - Appendicitis [Recovering/Resolving]

NARRATIVE: CASE EVENT DATE: 20220216
